FAERS Safety Report 15380984 (Version 3)
Quarter: 2018Q4

REPORT INFORMATION
  Report Type: Spontaneous
  Country: US (occurrence: US)
  Receive Date: 20180913
  Receipt Date: 20181008
  Transmission Date: 20190204
  Serious: No
  Sender: FDA-Public Use
  Company Number: US-B.I. PHARMACEUTICALS,INC./RIDGEFIELD-2018-BI-044847

PATIENT
  Age: 80 Year
  Sex: Female

DRUGS (1)
  1. SPIRIVA RESPIMAT [Suspect]
     Active Substance: TIOTROPIUM BROMIDE
     Indication: CHRONIC OBSTRUCTIVE PULMONARY DISEASE
     Dosage: FORMULATION: INHALATION SPRAY; ADMINISTRATION CORRECT?YESACTION TAKEN: DOSE NOT CHANGED
     Route: 055
     Dates: start: 20180901

REACTIONS (3)
  - Product quality issue [Unknown]
  - Cough [Recovered/Resolved]
  - Product counterfeit [Unknown]

NARRATIVE: CASE EVENT DATE: 20180901
